FAERS Safety Report 13204013 (Version 1)
Quarter: 2017Q1

REPORT INFORMATION
  Report Type: Report from Study
  Country: BG (occurrence: BG)
  Receive Date: 20170209
  Receipt Date: 20170209
  Transmission Date: 20170428
  Serious: Yes (Hospitalization, Other)
  Sender: FDA-Public Use
  Company Number: BG-AMGEN-BGRSL2017019512

PATIENT
  Age: 73 Year
  Sex: Male
  Weight: 65 kg

DRUGS (1)
  1. VECTIBIX [Suspect]
     Active Substance: PANITUMUMAB
     Indication: COLORECTAL CANCER METASTATIC
     Dosage: 390 MG, UNK (2 TIMES MONTHLY)
     Route: 042
     Dates: start: 20161130

REACTIONS (1)
  - Venous thrombosis limb [Recovering/Resolving]

NARRATIVE: CASE EVENT DATE: 20161230
